FAERS Safety Report 11332565 (Version 1)
Quarter: 2015Q3

REPORT INFORMATION
  Report Type: Spontaneous
  Country: US (occurrence: US)
  Receive Date: 20150803
  Receipt Date: 20150803
  Transmission Date: 20151125
  Serious: No
  Sender: FDA-Public Use
  Company Number: US-ELI_LILLY_AND_COMPANY-US200811002767

PATIENT
  Age: 36 Year
  Sex: Male
  Weight: 93.42 kg

DRUGS (2)
  1. ZYPREXA [Suspect]
     Active Substance: OLANZAPINE
     Indication: BIPOLAR DISORDER
     Dates: start: 19990810
  2. ZYPREXA [Suspect]
     Active Substance: OLANZAPINE
     Dosage: 5 MG, UNK
     Route: 048
     Dates: start: 200112, end: 200204

REACTIONS (17)
  - Erectile dysfunction [Unknown]
  - Feeling of despair [Unknown]
  - Suicidal ideation [Unknown]
  - Ketonuria [Unknown]
  - Depression [Unknown]
  - Hypotension [Unknown]
  - Muscle atrophy [Unknown]
  - Mobility decreased [Unknown]
  - Acetonaemia [Unknown]
  - Diarrhoea [Unknown]
  - Anxiety [Unknown]
  - Self esteem decreased [Unknown]
  - Fear [Unknown]
  - Metabolic disorder [Unknown]
  - Drug ineffective [Unknown]
  - Anger [Unknown]
  - Neglect of personal appearance [Unknown]

NARRATIVE: CASE EVENT DATE: 200209
